FAERS Safety Report 22306901 (Version 2)
Quarter: 2023Q2

REPORT INFORMATION
  Report Type: Spontaneous
  Country: US (occurrence: None)
  Receive Date: 20230511
  Receipt Date: 20230609
  Transmission Date: 20230722
  Serious: No
  Sender: FDA-Public Use
  Company Number: 2023A105234

PATIENT

DRUGS (1)
  1. FASENRA [Suspect]
     Active Substance: BENRALIZUMAB
     Route: 058
     Dates: start: 20230202

REACTIONS (4)
  - Laboratory test abnormal [Unknown]
  - White blood cell disorder [Unknown]
  - Neutrophil count abnormal [Unknown]
  - Eosinophil count decreased [Unknown]
